FAERS Safety Report 7621526-3 (Version None)
Quarter: 2011Q3

REPORT INFORMATION
  Report Type: 
  Country: None (occurrence: None)
  Receive Date: 20110719
  Receipt Date: 20110715
  Transmission Date: 20111222
  Serious: Yes (Other)
  Sender: FDA-Public Use
  Company Number: IT-PFIZER INC-2011162953

PATIENT
  Age: 29 Year
  Sex: Female

DRUGS (3)
  1. VAGILEN [Suspect]
     Dosage: 500 MG, 3X/DAY
     Route: 048
     Dates: start: 20110308, end: 20110310
  2. MEDROL [Suspect]
     Indication: COUGH
     Dosage: 4 MG, 1X/DAY
     Route: 048
     Dates: start: 20110308, end: 20110310
  3. FLUIMUCIL [Suspect]
     Indication: COUGH
     Dosage: 1 DOSAGE UNIT
     Route: 048
     Dates: start: 20110308, end: 20110310

REACTIONS (5)
  - VERTIGO [None]
  - DIPLOPIA [None]
  - ASTHENIA [None]
  - NAUSEA [None]
  - PAIN [None]
